FAERS Safety Report 9615750 (Version 2)
Quarter: 2013Q4

REPORT INFORMATION
  Report Type: Spontaneous
  Country: US (occurrence: US)
  Receive Date: 20131011
  Receipt Date: 20131011
  Transmission Date: 20140711
  Serious: No
  Sender: FDA-Public Use
  Company Number: US-PURDUE-USA-2013-0098293

PATIENT
  Age: 53 Year
  Sex: Female
  Weight: 90.7 kg

DRUGS (9)
  1. BUTRANS [Suspect]
     Indication: MIGRAINE
     Dosage: 10 MCG/HR, 1/WEEK
     Route: 062
     Dates: start: 201211, end: 201212
  2. BUTRANS [Suspect]
     Dosage: 5 MCG/HR, 1/WEEK
     Route: 062
     Dates: start: 201212, end: 201301
  3. METOPROLOL [Concomitant]
     Indication: PRODUCT USED FOR UNKNOWN INDICATION
  4. QUINAPRIL [Concomitant]
     Indication: PRODUCT USED FOR UNKNOWN INDICATION
  5. ARMOUR THYROID [Concomitant]
     Indication: PRODUCT USED FOR UNKNOWN INDICATION
  6. VIIBYRD [Concomitant]
     Indication: PRODUCT USED FOR UNKNOWN INDICATION
  7. PROGESTERONE [Concomitant]
     Indication: PRODUCT USED FOR UNKNOWN INDICATION
  8. ESTRADIOL                          /00045402/ [Concomitant]
     Indication: PRODUCT USED FOR UNKNOWN INDICATION
  9. SOMA [Concomitant]
     Indication: PRODUCT USED FOR UNKNOWN INDICATION

REACTIONS (6)
  - Application site burn [Recovering/Resolving]
  - Device leakage [Unknown]
  - Application site erythema [Recovering/Resolving]
  - Application site pruritus [Recovering/Resolving]
  - Application site pain [Recovering/Resolving]
  - Application site discharge [Unknown]
